FAERS Safety Report 5916976-7 (Version None)
Quarter: 2008Q4

REPORT INFORMATION
  Report Type: 
  Country: None (occurrence: None)
  Receive Date: 20081013
  Receipt Date: 20080929
  Transmission Date: 20090506
  Serious: Yes (Life-Threatening)
  Sender: FDA-Public Use
  Company Number: AT-BAUSCH-2008BL004282

PATIENT
  Age: 2 Month
  Sex: Female
  Weight: 5 kg

DRUGS (6)
  1. CYCLOPENTOLATE HCL [Suspect]
     Indication: MYDRIASIS
     Route: 047
  2. PHENYLEPHRINE [Suspect]
     Route: 057
  3. MIDAZOLAM [Concomitant]
     Indication: ANAESTHESIA
     Route: 054
  4. HALOTHANE [Concomitant]
     Indication: ANAESTHESIA
     Route: 049
  5. PROPOFOL [Concomitant]
     Indication: ANAESTHESIA
     Route: 042
  6. VECURONIUM BROMIDE [Concomitant]
     Indication: ANAESTHESIA
     Route: 042

REACTIONS (2)
  - HYPERTENSION [None]
  - PULMONARY OEDEMA [None]
